FAERS Safety Report 13352575 (Version 3)
Quarter: 2018Q2

REPORT INFORMATION
  Report Type: Report from Study
  Country: MX (occurrence: MX)
  Receive Date: 20170320
  Receipt Date: 20180409
  Transmission Date: 20180711
  Serious: Yes (Other)
  Sender: FDA-Public Use
  Company Number: PHHY2017MX042068

PATIENT
  Sex: Male
  Weight: 73 kg

DRUGS (4)
  1. TRILEPTAL [Suspect]
     Active Substance: OXCARBAZEPINE
     Indication: MUSCLE SPASMS
     Dosage: 0.25 DF, Q12H  ((0.25 IN THE MORNING AND 0.25 AT NIGHT)
     Route: 048
  2. TALPRAMIN [Concomitant]
     Indication: MIGRAINE
     Dosage: 1.5 DF, QD (8 YEARS AGO APPROXIMATELY)
     Route: 065
  3. DOLGRAMIN [Concomitant]
     Indication: MIGRAINE
     Dosage: 0.5 DF, QD (0.25 IN THE MORNING AND 0.25 AT NIGHT) 5 YEARS AGO
     Route: 048
  4. EUTIROX [Concomitant]
     Active Substance: LEVOTHYROXINE SODIUM
     Indication: PRODUCT USED FOR UNKNOWN INDICATION
     Route: 065

REACTIONS (6)
  - Mitral valve disease [Unknown]
  - Arrhythmia [Unknown]
  - Drug prescribing error [Not Recovered/Not Resolved]
  - Hypothyroidism [Unknown]
  - Wrong technique in product usage process [Not Recovered/Not Resolved]
  - Product use in unapproved indication [Not Recovered/Not Resolved]
